FAERS Safety Report 9552049 (Version 2)
Quarter: 2014Q3

REPORT INFORMATION
  Report Type: Spontaneous
  Country: US (occurrence: US)
  Receive Date: 20130925
  Receipt Date: 20140804
  Transmission Date: 20150326
  Serious: Yes (Other)
  Sender: FDA-Public Use
  Company Number: PHEH2013US019531

PATIENT
  Age: 87 Year
  Sex: Female

DRUGS (8)
  1. METOPROLOL [Concomitant]
     Active Substance: METOPROLOL
     Dosage: UNK UKN, UNK
  2. LISINOPRIL AND HYDROCHLOROTHIAZIDE [Concomitant]
     Active Substance: HYDROCHLOROTHIAZIDE\LISINOPRIL
     Dosage: UNK UKN, UNK
  3. TYROSINE [Concomitant]
     Active Substance: TYROSINE
     Dosage: UNK UKN, UNK
  4. EXELON PATCH [Suspect]
     Active Substance: RIVASTIGMINE
     Dosage: 4.6 MG DAILY
     Route: 062
     Dates: start: 201306
  5. EXELON [Suspect]
     Active Substance: RIVASTIGMINE TARTRATE
     Dosage: UNK UKN, UNK
  6. EXELON PATCH [Suspect]
     Active Substance: RIVASTIGMINE
     Dosage: 9.5 MG, DAILY
     Route: 062
     Dates: end: 2014
  7. VITAMIN D3 [Concomitant]
     Active Substance: CHOLECALCIFEROL
     Dosage: UNK UKN, UNK
  8. ALIGN [Concomitant]
     Active Substance: BIFIDOBACTERIUM LONGUM SUBSP. INFANTIS
     Dosage: UNK UKN, UNK

REACTIONS (8)
  - Blood potassium abnormal [Unknown]
  - Muscle spasms [Unknown]
  - Application site pruritus [Recovered/Resolved]
  - Memory impairment [Unknown]
  - Abdominal discomfort [Unknown]
  - Application site erythema [Unknown]
  - Senile dementia [Unknown]
  - Mental impairment [Unknown]
